FAERS Safety Report 24767957 (Version 1)
Quarter: 2024Q4

REPORT INFORMATION
  Report Type: Spontaneous
  Country: US (occurrence: US)
  Receive Date: 20241223
  Receipt Date: 20241223
  Transmission Date: 20250114
  Serious: No
  Sender: INCYTE
  Company Number: US-EVENT-000781

PATIENT

DRUGS (1)
  1. OPZELURA [Suspect]
     Active Substance: RUXOLITINIB PHOSPHATE
     Indication: Vitiligo
     Dosage: BID
     Route: 065

REACTIONS (3)
  - Vitiligo [Unknown]
  - Expired product administered [Unknown]
  - Product distribution issue [Unknown]
